FAERS Safety Report 5490845-1 (Version None)
Quarter: 2007Q4

REPORT INFORMATION
  Report Type: 
  Country: None (occurrence: None)
  Receive Date: 20071019
  Receipt Date: 20071012
  Transmission Date: 20080405
  Serious: Yes (Life-Threatening, Hospitalization)
  Sender: FDA-Public Use
  Company Number: JP-MERCK-0710USA03504

PATIENT
  Age: 77 Year
  Sex: Female

DRUGS (5)
  1. FOSAMAX [Suspect]
     Indication: OSTEOPOROSIS
     Route: 048
  2. RENIVACE [Concomitant]
     Route: 048
  3. CHOLECALCIFEROL AND VITAMIN A [Concomitant]
     Indication: OSTEOPOROSIS
     Route: 048
  4. THYRADIN-S [Concomitant]
     Indication: HYPOTHYROIDISM
     Route: 048
  5. ASPARA [Concomitant]
     Indication: OSTEOPOROSIS
     Route: 048

REACTIONS (2)
  - BLOOD CALCIUM DECREASED [None]
  - CARDIAC FAILURE ACUTE [None]
